FAERS Safety Report 5724176-9 (Version None)
Quarter: 2008Q2

REPORT INFORMATION
  Report Type: 
  Country: None (occurrence: None)
  Receive Date: 20080430
  Receipt Date: 20080417
  Transmission Date: 20081010
  Serious: Yes (Other)
  Sender: FDA-Public Use
  Company Number: DE-AMGEN-UK266313

PATIENT
  Sex: Female
  Weight: 58 kg

DRUGS (6)
  1. KEPIVANCE [Suspect]
     Indication: DRUG USE FOR UNKNOWN INDICATION
     Route: 065
     Dates: start: 20080215, end: 20080217
  2. CYCLOPHOSPHAMIDE [Concomitant]
     Route: 042
     Dates: start: 20071228, end: 20071228
  3. CARMUSTINE [Concomitant]
  4. ETOPOSIDE [Concomitant]
  5. CYTARABINE [Concomitant]
  6. MELPHALAN [Concomitant]

REACTIONS (3)
  - PERIORBITAL OEDEMA [None]
  - PRURITUS [None]
  - RASH [None]
